FAERS Safety Report 7909807-7 (Version None)
Quarter: 2011Q4

REPORT INFORMATION
  Report Type: 
  Country: None (occurrence: None)
  Receive Date: 20111111
  Receipt Date: 20111109
  Transmission Date: 20120403
  Serious: Yes (Other)
  Sender: FDA-Public Use
  Company Number: DE-ABBOTT-11P-062-0873133-00

PATIENT
  Sex: Male

DRUGS (7)
  1. ANTIHYPERTENSIVE DRUG [Concomitant]
     Indication: HYPERTENSION
  2. ANTIHYPERTENSIVE DRUG [Concomitant]
  3. METHOTREXATE SODIUM [Concomitant]
     Indication: RHEUMATOID ARTHRITIS
  4. IBUPROFEN [Concomitant]
     Indication: RHEUMATOID ARTHRITIS
     Route: 048
  5. ANTIHYPERTENSIVE DRUG [Concomitant]
  6. HUMIRA [Suspect]
     Indication: RHEUMATOID ARTHRITIS
     Route: 058
     Dates: start: 20100628
  7. CORTISONE ACETATE [Concomitant]
     Indication: RHEUMATOID ARTHRITIS

REACTIONS (1)
  - KNEE DEFORMITY [None]
